FAERS Safety Report 24729645 (Version 4)
Quarter: 2025Q1

REPORT INFORMATION
  Report Type: Spontaneous
  Country: JP (occurrence: JP)
  Receive Date: 20241213
  Receipt Date: 20250318
  Transmission Date: 20250409
  Serious: Yes (Death, Hospitalization, Other)
  Sender: GLAXOSMITHKLINE
  Company Number: JP-GSKJP-JP2024JPN154859AA

PATIENT

DRUGS (59)
  1. DAPRODUSTAT [Suspect]
     Active Substance: DAPRODUSTAT
     Indication: Nephrogenic anaemia
     Dosage: 4 MG, 1D, AFTER BREAKFAST
     Route: 048
     Dates: start: 20230908
  2. DAPRODUSTAT [Suspect]
     Active Substance: DAPRODUSTAT
     Route: 048
     Dates: start: 20240302
  3. TENELIGLIPTIN HYDROBROMIDE HYDRATE [Concomitant]
     Active Substance: TENELIGLIPTIN HYDROBROMIDE HYDRATE
     Dosage: 20 MG, 1D, AFTER BREAKFAST
  4. ESOMEPRAZOLE [Concomitant]
     Active Substance: ESOMEPRAZOLE
     Dosage: 20 MG, 1D, AFTER BREAKFAST
  5. ASPIRIN [Concomitant]
     Active Substance: ASPIRIN
     Dosage: 100 MG, 1D, AFTER BREAKFAST
  6. PRASUGREL HYDROCHLORIDE [Concomitant]
     Active Substance: PRASUGREL HYDROCHLORIDE
     Dosage: 3.75 MG, 1D, AFTER BREAKFAST
  7. SODIUM FERROUS CITRATE [Concomitant]
     Active Substance: SODIUM FERROUS CITRATE
     Dosage: UNK, BID, AFTER BREAKFAST AND DINNER
  8. SODIUM FERROUS CITRATE [Concomitant]
     Active Substance: SODIUM FERROUS CITRATE
     Dosage: 100 MG, 1D, AFTER LUNCH
  9. CLOBETASOL [Concomitant]
     Active Substance: CLOBETASOL
  10. MAGNESIUM OXIDE [Concomitant]
     Active Substance: MAGNESIUM OXIDE
     Dosage: UNK, TID, AFTER EVERY MEAL
  11. MAGNESIUM OXIDE [Concomitant]
     Active Substance: MAGNESIUM OXIDE
     Dosage: UNK, BID, AFTER BREAKFAST AND DINNER
  12. CELESTAMINE [Concomitant]
     Active Substance: BETAMETHASONE\DEXCHLORPHENIRAMINE MALEATE
     Dosage: UNK, TID, AFTER EVERY MEAL
  13. CELESTAMINE [Concomitant]
     Active Substance: BETAMETHASONE\DEXCHLORPHENIRAMINE MALEATE
     Dosage: UNK, QID, MORNING, NOON, EVENING, BEFORE BEDTIME
  14. SENNOSIDES [Concomitant]
     Active Substance: SENNOSIDES
     Dosage: 36 MG, 1D, AFTER DINNER
  15. AZOSEMIDE [Concomitant]
     Active Substance: AZOSEMIDE
     Dosage: 60 MG, 1D, AFTER BREAKFAST
  16. SPIRONOLACTONE [Concomitant]
     Active Substance: SPIRONOLACTONE
     Dosage: 25 MG, 1D, AFTER BREAKFAST
  17. DIFLORASONE DIACETATE [Concomitant]
     Active Substance: DIFLORASONE DIACETATE
     Dosage: UNK, 1D
  18. LEVOCETIRIZINE [Concomitant]
     Active Substance: LEVOCETIRIZINE
     Dosage: 5 MG, 1D, BEFORE BEDTIME
  19. LOKELMA [Concomitant]
     Active Substance: SODIUM ZIRCONIUM CYCLOSILICATE
     Dosage: UNK, TID, AFTER EVERY MEAL
  20. REBAMIPIDE [Concomitant]
     Active Substance: REBAMIPIDE
     Dosage: UNK, TID, AFTER EVERY MEAL
  21. CALONAL [Concomitant]
     Active Substance: ACETAMINOPHEN
     Indication: Pain
  22. CALONAL [Concomitant]
     Active Substance: ACETAMINOPHEN
     Indication: Pyrexia
  23. RINDERON VG [Concomitant]
     Active Substance: BETAMETHASONE VALERATE\GENTAMICIN SULFATE
     Dosage: UNK, BID
  24. GENTAMICIN SULFATE [Concomitant]
     Active Substance: GENTAMICIN SULFATE
     Dosage: UNK, 1D, LEFT THIRD TOE
  25. OFLOXACIN [Concomitant]
     Active Substance: OFLOXACIN
     Dosage: UNK, TID
  26. OFLOXACIN [Concomitant]
     Active Substance: OFLOXACIN
  27. CLOBETASOL [Concomitant]
     Active Substance: CLOBETASOL
     Dosage: 50 G, 1D
  28. Glubes od [Concomitant]
     Dosage: UNK, BID, RIGH BEFORE BREAKFAST AND DINNER
  29. GLIMEPIRIDE [Concomitant]
     Active Substance: GLIMEPIRIDE
     Dosage: UNK, TID, AFTER EVERY MEAL
  30. GLIMEPIRIDE [Concomitant]
     Active Substance: GLIMEPIRIDE
     Dosage: 1 MG, 1D, AFTER LUNCH
  31. EURAX [Concomitant]
     Active Substance: CROTAMITON
     Dosage: UNK, 1D
  32. LINAGLIPTIN [Concomitant]
     Active Substance: LINAGLIPTIN
     Dosage: 5 MG, 1D, AFTER BREAKFAST
  33. PIRENOXINE [Concomitant]
     Active Substance: PIRENOXINE
     Dosage: UNK, TID
  34. DOMPERIDONE [Concomitant]
     Active Substance: DOMPERIDONE
     Indication: Nausea
  35. DOMPERIDONE [Concomitant]
     Active Substance: DOMPERIDONE
     Dosage: UNK, TID, AFTER EVERY MEAL
  36. DOMPERIDONE [Concomitant]
     Active Substance: DOMPERIDONE
     Dosage: UNK, TID, BEFORE EVERY MEAL
  37. GLUTAMINE\SODIUM GUALENATE [Concomitant]
     Active Substance: GLUTAMINE\SODIUM GUALENATE
     Dosage: UNK, TID, AFTER EVERY MEAL
  38. LANTUS SOLOSTAR [Concomitant]
     Active Substance: INSULIN GLARGINE
     Dosage: UNK, 1D, BEFORE DINNER
  39. GENTAMICIN [Concomitant]
     Active Substance: GENTAMICIN
     Indication: Abscess
     Dosage: UNK, 1D
  40. FUROSEMIDE [Concomitant]
     Active Substance: FUROSEMIDE
     Dosage: 20 MG, 1D, AFTER BREAKFAST
  41. FUROSEMIDE [Concomitant]
     Active Substance: FUROSEMIDE
     Dosage: 20 MG, 1D, AFTER LUNCH
  42. FUROSEMIDE [Concomitant]
     Active Substance: FUROSEMIDE
     Dosage: 20 MG, 1D, AFTER BREAKFAST
  43. Diart [Concomitant]
     Dosage: 60 MG, 1D, AFTER BREAKFAST
  44. XYZAL [Concomitant]
     Active Substance: LEVOCETIRIZINE DIHYDROCHLORIDE
     Dosage: 5 MG, 1D, BEFORE BEDTIME
  45. MAGNESIUM OXIDE [Concomitant]
     Active Substance: MAGNESIUM OXIDE
     Dosage: UNK, BID, AFTER BREAKFAST AND DINNER
  46. ACETAMINOPHEN\BROMISOVAL\DIHYDROCODEINE PHOSPHATE\DIPHENHYDRAMINE SALI [Concomitant]
     Active Substance: ACETAMINOPHEN\BROMISOVAL\DIHYDROCODEINE PHOSPHATE\DIPHENHYDRAMINE SALICYLATE\DYPHYLLINE\METHYLEPHEDR
     Dosage: UNK, TID, AFTER EVERY MEAL
  47. TEPRENONE [Concomitant]
     Active Substance: TEPRENONE
     Dosage: UNK, TID, AFTER EVERY MEAL
  48. PETROLATUM [Concomitant]
     Active Substance: PETROLATUM
     Dosage: UNK, 1D
  49. DAPAGLIFLOZIN [Concomitant]
     Active Substance: DAPAGLIFLOZIN
     Dosage: 5 MG, 1D, AFTER LUNCH
  50. BISACODYL [Concomitant]
     Active Substance: BISACODYL
     Indication: Constipation
  51. BETAMETHASONE DIPROPIONATE [Concomitant]
     Active Substance: BETAMETHASONE DIPROPIONATE
  52. Heparinoid [Concomitant]
  53. CLOBETASONE BUTYRATE [Concomitant]
     Active Substance: CLOBETASONE BUTYRATE
  54. DIPHENHYDRAMINE [Concomitant]
     Active Substance: DIPHENHYDRAMINE
  55. AMOXICILLIN [Concomitant]
     Active Substance: AMOXICILLIN
     Dosage: UNK, TID, AFTER EVERY MEAL
  56. Atolant [Concomitant]
  57. Bilanoa od [Concomitant]
     Dosage: 20 MG, 1D
  58. MIYA-BM [Concomitant]
     Active Substance: CLOSTRIDIUM BUTYRICUM SPORES STRAIN M-55
     Dosage: UNK, TID
  59. CYANOCOBALAMIN [Concomitant]
     Active Substance: CYANOCOBALAMIN
     Dosage: UNK, BID

REACTIONS (8)
  - Death [Fatal]
  - Hypersensitivity [Not Recovered/Not Resolved]
  - Autoimmune disorder [Not Recovered/Not Resolved]
  - Pyrexia [Recovered/Resolved]
  - Pruritus [Unknown]
  - Nephropathy [Unknown]
  - Swelling [Not Recovered/Not Resolved]
  - Pain [Not Recovered/Not Resolved]

NARRATIVE: CASE EVENT DATE: 20231025
